FAERS Safety Report 9127316 (Version 3)
Quarter: 2013Q2

REPORT INFORMATION
  Report Type: Report from Study
  Country: GB (occurrence: GB)
  Receive Date: 20130228
  Receipt Date: 20130617
  Transmission Date: 20140414
  Serious: Yes (Life-Threatening, Hospitalization)
  Sender: FDA-Public Use
  Company Number: GB-CELGENEUS-167-C5013-13023319

PATIENT
  Age: 60 Year
  Sex: Female

DRUGS (3)
  1. CC-5013\PLACEBO [Suspect]
     Indication: CHRONIC LYMPHOCYTIC LEUKAEMIA
     Dosage: 5 MILLIGRAM
     Route: 048
     Dates: start: 20101129
  2. CC-5013\PLACEBO [Suspect]
     Route: 048
     Dates: start: 20130131, end: 20130222
  3. CC-5013\PLACEBO [Suspect]
     Dosage: 2.5 MILLIGRAM
     Route: 048
     Dates: start: 20130307, end: 20130330

REACTIONS (4)
  - Neutropenic sepsis [Recovered/Resolved]
  - Sepsis [Unknown]
  - Dehydration [Unknown]
  - Hypotension [Unknown]
